FAERS Safety Report 23551406 (Version 1)
Quarter: 2024Q1

REPORT INFORMATION
  Report Type: Report from Study
  Country: US (occurrence: US)
  Receive Date: 20240222
  Receipt Date: 20240222
  Transmission Date: 20240410
  Serious: Yes (Other)
  Sender: FDA-Public Use
  Company Number: US-ARGENX-2023-ARGX-US003791

PATIENT

DRUGS (1)
  1. VYVGART [Suspect]
     Active Substance: EFGARTIGIMOD ALFA-FCAB
     Indication: Myasthenia gravis
     Dosage: UNK
     Route: 042
     Dates: start: 20231030

REACTIONS (13)
  - Basal cell carcinoma [Unknown]
  - Hypersomnia [Unknown]
  - Fatigue [Unknown]
  - Paraesthesia [Recovered/Resolved]
  - Vertigo [Unknown]
  - Blood potassium decreased [Unknown]
  - Enzyme level increased [Unknown]
  - Head discomfort [Unknown]
  - Muscular weakness [Unknown]
  - Eyelid ptosis [Unknown]
  - COVID-19 [Unknown]
  - Vertigo [Unknown]
  - Blood potassium decreased [Unknown]

NARRATIVE: CASE EVENT DATE: 20231030
